FAERS Safety Report 24574305 (Version 1)
Quarter: 2024Q4

REPORT INFORMATION
  Report Type: Spontaneous
  Country: US (occurrence: None)
  Receive Date: 20241104
  Receipt Date: 20241104
  Transmission Date: 20250114
  Serious: No
  Sender: Valinor Pharma
  Company Number: US-ARIS GLOBAL-VLR202311-000051

PATIENT
  Sex: Male

DRUGS (1)
  1. MOVANTIK [Suspect]
     Active Substance: NALOXEGOL OXALATE
     Indication: Product used for unknown indication
     Dosage: 25 MG TABLET EVERY OTHER DAY
     Route: 048

REACTIONS (2)
  - Drug ineffective [Unknown]
  - Inappropriate schedule of product administration [Unknown]

NARRATIVE: CASE EVENT DATE: 20231102
